FAERS Safety Report 4353155-1 (Version None)
Quarter: 2004Q2

REPORT INFORMATION
  Report Type: 
  Country: None (occurrence: None)
  Receive Date: 20040429
  Receipt Date: 20040423
  Transmission Date: 20050107
  Serious: Yes (Life-Threatening)
  Sender: FDA-Public Use
  Company Number: 03P-087-0235218-00

PATIENT
  Age: 74 Year
  Sex: Female

DRUGS (6)
  1. ISOPTIN [Suspect]
     Indication: ANGINA PECTORIS
     Dosage: 120 MG, 1 IN 1 D, PER ORAL
     Route: 048
     Dates: start: 20030812, end: 20030820
  2. CLARITHROMYCIN [Suspect]
     Dosage: 600 MG, 1 IN 1 D, PER ORAL
     Route: 048
     Dates: start: 20030814, end: 20030820
  3. AMBROXOL HYDROCHLORIDE [Suspect]
     Dosage: 45 MG, 1 IN 1 D, PER ORAL
     Route: 048
     Dates: start: 20030806, end: 20030820
  4. CARBOCISTEINE [Suspect]
     Dosage: 750 MG, 1 IN 1 D, PER ORAL
     Route: 048
     Dates: start: 20030806, end: 20030820
  5. ANTOCIN [Suspect]
     Dosage: 3 DOSAGE FORMS, 1 IN 1 D, PER ORAL
     Route: 048
     Dates: start: 20030806, end: 20030820
  6. NU-LOTAN [Suspect]
     Dosage: 25 MG, 1 IN 1 D, PER ORAL
     Route: 048
     Dates: start: 20030811, end: 20030820

REACTIONS (2)
  - ERYTHEMA MULTIFORME [None]
  - PYREXIA [None]
